FAERS Safety Report 16258927 (Version 1)
Quarter: 2019Q2

REPORT INFORMATION
  Report Type: Spontaneous
  Country: IT (occurrence: IT)
  Receive Date: 20190501
  Receipt Date: 20190501
  Transmission Date: 20190711
  Serious: Yes (Life-Threatening)
  Sender: FDA-Public Use
  Company Number: IT-TEVA-2019-IT-1043455

PATIENT
  Age: 53 Year
  Sex: Male
  Weight: 77 kg

DRUGS (2)
  1. OXALIPLATIN. [Suspect]
     Active Substance: OXALIPLATIN
     Route: 042
     Dates: start: 20180813
  2. CAPECITABINE. [Suspect]
     Active Substance: CAPECITABINE
     Dosage: 3500 MILLIGRAM DAILY;
     Route: 048
     Dates: start: 20180813, end: 20180816

REACTIONS (2)
  - Ventricular dysfunction [Unknown]
  - Arteriospasm coronary [Unknown]

NARRATIVE: CASE EVENT DATE: 20180817
